FAERS Safety Report 19521022 (Version 2)
Quarter: 2021Q3

REPORT INFORMATION
  Report Type: Spontaneous
  Country: US (occurrence: US)
  Receive Date: 20210712
  Receipt Date: 20210811
  Transmission Date: 20211014
  Serious: No
  Sender: FDA-Public Use
  Company Number: US-SA-2021SA219981

PATIENT
  Age: 63 Year
  Sex: Male

DRUGS (1)
  1. LANTUS SOLOSTAR [Suspect]
     Active Substance: INSULIN GLARGINE
     Indication: DIABETES MELLITUS
     Dosage: 60 IU, QD (ONCE DAILY)
     Route: 065

REACTIONS (3)
  - Tremor [Unknown]
  - Depressed mood [Unknown]
  - Hyperhidrosis [Unknown]
